FAERS Safety Report 13922323 (Version 1)
Quarter: 2017Q3

REPORT INFORMATION
  Report Type: Spontaneous
  Country: US (occurrence: US)
  Receive Date: 20170830
  Receipt Date: 20170830
  Transmission Date: 20171127
  Serious: Yes (Other)
  Sender: FDA-Public Use
  Company Number: PHHY2017US124996

PATIENT
  Age: 43 Year
  Sex: Male

DRUGS (6)
  1. TRIMETHOPRIM SULFAMETHOXAZOLE [Suspect]
     Active Substance: SULFAMETHOXAZOLE\TRIMETHOPRIM
     Indication: NOCARDIOSIS
     Dosage: UNK
     Route: 042
  2. PENICILLIN G SODIUM. [Suspect]
     Active Substance: PENICILLIN G SODIUM
     Indication: ACTINOMYCOSIS
  3. MEROPENEM. [Suspect]
     Active Substance: MEROPENEM
     Indication: NOCARDIOSIS
     Route: 042
  4. PENICILLIN G SODIUM. [Suspect]
     Active Substance: PENICILLIN G SODIUM
     Indication: NOCARDIOSIS
     Route: 042
  5. TRIMETHOPRIM SULFAMETHOXAZOLE [Suspect]
     Active Substance: SULFAMETHOXAZOLE\TRIMETHOPRIM
     Indication: ACTINOMYCOSIS
  6. MEROPENEM. [Suspect]
     Active Substance: MEROPENEM
     Indication: ACTINOMYCOSIS

REACTIONS (4)
  - Thrombocytopenia [Unknown]
  - Fluid overload [Unknown]
  - Partial seizures [Unknown]
  - Toxicity to various agents [Unknown]
